FAERS Safety Report 9133033 (Version 2)
Quarter: 2013Q2

REPORT INFORMATION
  Report Type: Spontaneous
  Country: DE (occurrence: DE)
  Receive Date: 20130301
  Receipt Date: 20130605
  Transmission Date: 20140414
  Serious: Yes (Death, Life-Threatening, Hospitalization, Other)
  Sender: FDA-Public Use
  Company Number: DE-B.I. PHARMACEUTICALS,INC./RIDGEFIELD-2013-DE-00515DE

PATIENT
  Age: 55 Year
  Sex: Female
  Weight: 100 kg

DRUGS (4)
  1. PRADAXA [Suspect]
     Indication: ATRIAL FIBRILLATION
     Dosage: 220 MG
     Route: 048
     Dates: start: 20130205, end: 20130223
  2. ASPISOL [Concomitant]
     Indication: MYOCARDIAL ISCHAEMIA
     Dosage: 500 MG
     Route: 042
     Dates: start: 20130222, end: 20130222
  3. HEPARIN [Concomitant]
     Indication: MYOCARDIAL ISCHAEMIA
     Dosage: 5000 U
     Route: 042
     Dates: start: 20130222, end: 20130222
  4. ADDITIONAL HOME MEDICATION [Concomitant]

REACTIONS (16)
  - Haemorrhage [Fatal]
  - Acute coronary syndrome [Fatal]
  - Coagulopathy [Fatal]
  - Haemorrhage [Fatal]
  - Shock haemorrhagic [Fatal]
  - Prothrombin time prolonged [Unknown]
  - Sepsis [Unknown]
  - Skin necrosis [Unknown]
  - Haemoglobin decreased [Unknown]
  - Asthenia [Unknown]
  - Nausea [Unknown]
  - Electrocardiogram ST segment abnormal [Unknown]
  - Abdominal pain upper [Unknown]
  - Disseminated intravascular coagulation [Unknown]
  - Thrombocytopenia [Unknown]
  - Blood fibrinogen decreased [Unknown]
